FAERS Safety Report 9890742 (Version 1)
Quarter: 2014Q1

REPORT INFORMATION
  Report Type: Spontaneous
  Country: US (occurrence: None)
  Receive Date: 20140210
  Receipt Date: 20140210
  Transmission Date: 20141002
  Serious: No
  Sender: FDA-Public Use
  Company Number: None

PATIENT
  Age: 56 Year
  Sex: Male
  Weight: 111 kg

DRUGS (1)
  1. NEOSTIGMINE [Suspect]
     Indication: INTRAOPERATIVE CARE
     Route: 030
     Dates: start: 20140116

REACTIONS (2)
  - Asthenia [None]
  - Drug effect decreased [None]
